FAERS Safety Report 9392123 (Version 1)
Quarter: 2013Q3

REPORT INFORMATION
  Report Type: Spontaneous
  Country: US (occurrence: US)
  Receive Date: 20130709
  Receipt Date: 20130709
  Transmission Date: 20140515
  Serious: No
  Sender: FDA-Public Use
  Company Number: US-TEVA-417658USA

PATIENT
  Sex: Male

DRUGS (2)
  1. NUVIGIL [Suspect]
     Indication: SLEEP APNOEA SYNDROME
  2. WELLBUTRIN [Concomitant]
     Indication: DEPRESSION

REACTIONS (11)
  - Erectile dysfunction [Unknown]
  - Libido decreased [Unknown]
  - Swollen tongue [Unknown]
  - Headache [Unknown]
  - Somnolence [Unknown]
  - Nausea [Unknown]
  - Dyspnoea [Unknown]
  - Palpitations [Unknown]
  - Fatigue [Unknown]
  - Chest discomfort [Unknown]
  - Incorrect dose administered [Unknown]
